FAERS Safety Report 23729910 (Version 1)
Quarter: 2024Q2

REPORT INFORMATION
  Report Type: Spontaneous
  Country: US (occurrence: US)
  Receive Date: 20240411
  Receipt Date: 20240411
  Transmission Date: 20240715
  Serious: No
  Sender: FDA-Public Use
  Company Number: US-HALEON-2166423

PATIENT

DRUGS (2)
  1. THERAFLU EXPRESSMAX DAYTIME SEVERE COLD AND COUGH [Suspect]
     Active Substance: ACETAMINOPHEN\DEXTROMETHORPHAN HYDROBROMIDE\PHENYLEPHRINE HYDROCHLORIDE
     Indication: Product used for unknown indication
     Dates: start: 20240328
  2. IBUPROFEN [Suspect]
     Active Substance: IBUPROFEN
     Indication: Product used for unknown indication

REACTIONS (1)
  - Feeling drunk [Unknown]

NARRATIVE: CASE EVENT DATE: 20240328
